FAERS Safety Report 15864621 (Version 1)
Quarter: 2019Q1

REPORT INFORMATION
  Report Type: Spontaneous
  Country: US (occurrence: US)
  Receive Date: 20190124
  Receipt Date: 20190124
  Transmission Date: 20190417
  Serious: No
  Sender: FDA-Public Use
  Company Number: US-ALLERGAN-1815386US

PATIENT
  Sex: Female

DRUGS (4)
  1. SYSTANE (HYPROMELLOSE 2910 (4000 MPA.S)) [Concomitant]
     Active Substance: HYPROMELLOSE 2910 (4000 MPA.S)
     Indication: DRY EYE
     Dosage: UNK UNK, QHS
     Route: 047
  2. PREDNISOLONE ACETATE, 1.0% [Suspect]
     Active Substance: PREDNISOLONE ACETATE
     Indication: EYE INFECTION
     Dosage: 1 GTT, UNK (5 TIMES DAILY)
     Route: 047
     Dates: start: 20180312, end: 20180314
  3. METRO [Concomitant]
     Indication: ROSACEA
     Dosage: UNK
     Route: 061
  4. REFRESH PLUS [Concomitant]
     Active Substance: CARBOXYMETHYLCELLULOSE SODIUM
     Indication: DRY EYE
     Dosage: UNK UNK, PRN
     Route: 047
     Dates: start: 1998

REACTIONS (1)
  - Off label use [Unknown]
